FAERS Safety Report 5999748-7 (Version None)
Quarter: 2008Q4

REPORT INFORMATION
  Report Type: 
  Country: None (occurrence: None)
  Receive Date: 20081215
  Receipt Date: 20081205
  Transmission Date: 20090506
  Serious: Yes (Other)
  Sender: FDA-Public Use
  Company Number: AR-PFIZER INC-2008101083

PATIENT

DRUGS (3)
  1. AMLOC [Suspect]
     Indication: HYPERTENSION
     Dosage: EVERY DAY
     Route: 048
     Dates: start: 20071201
  2. BISOPROLOL FUMARATE [Concomitant]
     Route: 048
     Dates: start: 20071201
  3. ROSUVASTATIN [Concomitant]
     Indication: HYPERCHOLESTEROLAEMIA
     Dosage: 2 EVERY 1 WEEKS
     Route: 048

REACTIONS (4)
  - CONDITION AGGRAVATED [None]
  - HYPOTHYROIDISM [None]
  - MUSCLE SPASMS [None]
  - MUSCULOSKELETAL DISCOMFORT [None]
